FAERS Safety Report 16967421 (Version 4)
Quarter: 2019Q4

REPORT INFORMATION
  Report Type: Spontaneous
  Country: PT (occurrence: PT)
  Receive Date: 20191028
  Receipt Date: 20191122
  Transmission Date: 20200122
  Serious: Yes (Hospitalization, Other)
  Sender: FDA-Public Use
  Company Number: PT-MYLANLABS-2019M1101350

PATIENT
  Age: 77 Year
  Sex: Male

DRUGS (4)
  1. OLMESARTAN MEDOXOMIL. [Suspect]
     Active Substance: OLMESARTAN MEDOXOMIL
     Indication: PRODUCT USED FOR UNKNOWN INDICATION
     Dosage: 20 MG, QD
     Route: 065
  2. AMLODIPINE [Suspect]
     Active Substance: AMLODIPINE BESYLATE
     Indication: HYPERTENSION
     Dosage: 5 MG, QD
     Route: 065
  3. SIMVASTATIN. [Concomitant]
     Active Substance: SIMVASTATIN
     Indication: DYSLIPIDAEMIA
     Dosage: 40 MG, QD
     Route: 065
  4. AMLODIPINE BESILATE/OLMESARTAN [Suspect]
     Active Substance: AMLODIPINE BESYLATE\OLMESARTAN MEDOXOMIL
     Indication: HYPERTENSION
     Dosage: (5 MG PLUS 20 MILLIGRAM), QD

REACTIONS (13)
  - Gastroenteritis [Recovered/Resolved]
  - Vomiting [Recovered/Resolved]
  - Intestinal villi atrophy [Recovered/Resolved]
  - Gastrointestinal disorder [Recovered/Resolved]
  - Weight decreased [Recovered/Resolved]
  - Hypokalaemia [Recovered/Resolved]
  - Metabolic acidosis [Recovered/Resolved]
  - Diarrhoea [Recovered/Resolved]
  - Acute kidney injury [Recovered/Resolved]
  - Renal injury [Recovered/Resolved]
  - Orthostatic hypotension [Recovered/Resolved]
  - Abdominal lymphadenopathy [Unknown]
  - Renal disorder [Recovered/Resolved]
